FAERS Safety Report 7520986-6 (Version None)
Quarter: 2011Q2

REPORT INFORMATION
  Report Type: 
  Country: None (occurrence: None)
  Receive Date: 20110603
  Receipt Date: 20101004
  Transmission Date: 20111010
  Serious: Yes (Hospitalization)
  Sender: FDA-Public Use
  Company Number: US-BAYER-201020207NA

PATIENT
  Age: 46 Year
  Sex: Female
  Weight: 80 kg

DRUGS (7)
  1. VALTREX [Concomitant]
     Route: 048
     Dates: start: 20071231, end: 20080109
  2. YAZ [Suspect]
     Indication: CONTRACEPTION
     Dates: start: 20070506, end: 20080415
  3. VYTORIN [Concomitant]
     Dates: start: 20080414
  4. NAPROXEN (ALEVE) [Concomitant]
     Indication: HEADACHE
  5. LOVENOX [Concomitant]
     Indication: THROMBOTIC STROKE
     Dosage: UNK
     Route: 058
     Dates: start: 20080415
  6. ADVIL LIQUI-GELS [Concomitant]
     Indication: HEADACHE
  7. IBUPROFEN [Concomitant]
     Indication: TEMPOROMANDIBULAR JOINT SYNDROME
     Dates: end: 20080415

REACTIONS (12)
  - EMBOLIC STROKE [None]
  - SYNCOPE [None]
  - MUSCULAR WEAKNESS [None]
  - DYSARTHRIA [None]
  - HYPOAESTHESIA [None]
  - HYPERLIPIDAEMIA [None]
  - TRANSIENT ISCHAEMIC ATTACK [None]
  - SPEECH DISORDER [None]
  - HEADACHE [None]
  - HYPERTENSION [None]
  - CEREBROVASCULAR ACCIDENT [None]
  - DIZZINESS [None]
